FAERS Safety Report 6494764-3 (Version None)
Quarter: 2009Q4

REPORT INFORMATION
  Report Type: 
  Country: None (occurrence: None)
  Receive Date: 20091214
  Receipt Date: 20090323
  Transmission Date: 20100525
  Serious: No
  Sender: FDA-Public Use
  Company Number: US-BRISTOL-MYERS SQUIBB COMPANY-14556864

PATIENT
  Age: 56 Year
  Sex: Female
  Weight: 77 kg

DRUGS (8)
  1. ABILIFY [Suspect]
     Indication: DEPRESSION
     Dosage: 1 DOSAGE FORM = 10-15 MG
  2. ABILIFY [Suspect]
     Indication: ANXIETY
     Dosage: 1 DOSAGE FORM = 10-15 MG
  3. LEVOXYL [Concomitant]
  4. KLONOPIN [Concomitant]
  5. BENADRYL [Concomitant]
  6. VISTARIL [Concomitant]
  7. TYLENOL (CAPLET) [Concomitant]
  8. IBUPROFEN [Concomitant]

REACTIONS (3)
  - INCREASED APPETITE [None]
  - RASH [None]
  - WEIGHT INCREASED [None]
